FAERS Safety Report 20195987 (Version 1)
Quarter: 2021Q4

REPORT INFORMATION
  Report Type: Spontaneous
  Country: US (occurrence: None)
  Receive Date: 20211216
  Receipt Date: 20211216
  Transmission Date: 20220303
  Serious: No
  Sender: FDA-Public Use
  Company Number: None

PATIENT
  Age: 35 Year
  Sex: Female
  Weight: 93 kg

DRUGS (20)
  1. CASIRIVIMAB\IMDEVIMAB [Suspect]
     Active Substance: CASIRIVIMAB\IMDEVIMAB
     Indication: COVID-19
     Dosage: OTHER FREQUENCY : ONCE;?
     Route: 042
     Dates: start: 20211214, end: 20211214
  2. ALBUTEROL SULFATE [Concomitant]
     Active Substance: ALBUTEROL SULFATE
  3. APIXABAN [Concomitant]
     Active Substance: APIXABAN
  4. ASPIRIN [Concomitant]
     Active Substance: ASPIRIN
  5. ATORVASTATIN [Concomitant]
     Active Substance: ATORVASTATIN
  6. Azelastine Ophth [Concomitant]
  7. CARIPRAZINE [Concomitant]
     Active Substance: CARIPRAZINE
  8. IVABRADINE [Concomitant]
     Active Substance: IVABRADINE
  9. DESVENLAFAXINE [Concomitant]
     Active Substance: DESVENLAFAXINE
  10. DEXLANSOPRAZOLE [Concomitant]
     Active Substance: DEXLANSOPRAZOLE
  11. DIAZEPAM [Concomitant]
     Active Substance: DIAZEPAM
  12. DILTIAZEM [Concomitant]
     Active Substance: DILTIAZEM
  13. HYDROMORPHONE [Concomitant]
     Active Substance: HYDROMORPHONE
  14. ISOSORBIDE MONONITRATE [Concomitant]
     Active Substance: ISOSORBIDE MONONITRATE
  15. LEVOCETIRIZINE [Concomitant]
     Active Substance: LEVOCETIRIZINE
  16. ONDANSETRON [Concomitant]
     Active Substance: ONDANSETRON
  17. OXCARBAZEPINE [Concomitant]
     Active Substance: OXCARBAZEPINE
  18. PLECANATIDE [Concomitant]
     Active Substance: PLECANATIDE
  19. PROMETHAZINE [Concomitant]
     Active Substance: PROMETHAZINE HYDROCHLORIDE
  20. TIZANIDINE [Concomitant]
     Active Substance: TIZANIDINE

REACTIONS (5)
  - Pruritus [None]
  - Dyspnoea [None]
  - Chest pain [None]
  - Wheezing [None]
  - Therapy change [None]

NARRATIVE: CASE EVENT DATE: 20211214
